FAERS Safety Report 5399577-1 (Version None)
Quarter: 2007Q3

REPORT INFORMATION
  Report Type: 
  Country: None (occurrence: None)
  Receive Date: 20070727
  Receipt Date: 20070717
  Transmission Date: 20080115
  Serious: Yes (Death, Other)
  Sender: FDA-Public Use
  Company Number: ES-PFIZER INC-2007025872

PATIENT
  Age: 65 Year
  Sex: Male

DRUGS (3)
  1. LYRICA [Suspect]
     Indication: NEURALGIA
     Route: 048
     Dates: start: 20060804, end: 20060830
  2. CHEMOTHERAPY NOS [Concomitant]
  3. MORPHINE [Concomitant]
     Dates: start: 20060601

REACTIONS (4)
  - MALIGNANT NEOPLASM PROGRESSION [None]
  - METASTASES TO SPINE [None]
  - MUSCULAR WEAKNESS [None]
  - RESPIRATORY FAILURE [None]
